FAERS Safety Report 9204762 (Version 1)
Quarter: 2013Q2

REPORT INFORMATION
  Report Type: Spontaneous
  Country: US (occurrence: US)
  Receive Date: 20130402
  Receipt Date: 20130402
  Transmission Date: 20140414
  Serious: Yes (Other)
  Sender: FDA-Public Use
  Company Number: US-GLAXOSMITHKLINE-A1017032A

PATIENT
  Sex: Female

DRUGS (2)
  1. VENTOLIN HFA [Suspect]
     Indication: ASTHMA
     Dosage: 1PUFF AS REQUIRED
     Route: 055
     Dates: start: 2003
  2. NO CONCURRENT MEDICATION [Concomitant]

REACTIONS (4)
  - Road traffic accident [Recovered/Resolved]
  - Feeling jittery [Recovered/Resolved]
  - Somnolence [Recovered/Resolved]
  - Incorrect dose administered [Unknown]
